FAERS Safety Report 7014908-4 (Version None)
Quarter: 2010Q3

REPORT INFORMATION
  Report Type: 
  Country: None (occurrence: None)
  Receive Date: 20100927
  Receipt Date: 20090928
  Transmission Date: 20110219
  Serious: No
  Sender: FDA-Public Use
  Company Number: US-ASTRAZENECA-2009SE16248

PATIENT
  Sex: Female
  Weight: 106.6 kg

DRUGS (1)
  1. ARIMIDEX [Suspect]
     Route: 048
     Dates: start: 20071114

REACTIONS (4)
  - ARTHRALGIA [None]
  - BLOOD CHOLESTEROL INCREASED [None]
  - HOT FLUSH [None]
  - MOOD ALTERED [None]
